FAERS Safety Report 10563719 (Version 1)
Quarter: 2014Q4

REPORT INFORMATION
  Report Type: Spontaneous
  Country: US (occurrence: US)
  Receive Date: 20141104
  Receipt Date: 20141104
  Transmission Date: 20150529
  Serious: No
  Sender: FDA-Public Use
  Company Number: US-GLAXOSMITHKLINE-US2014007718

PATIENT
  Sex: Female

DRUGS (4)
  1. IV STEROID (UNKNOWN) [Concomitant]
  2. BENLYSTA [Suspect]
     Active Substance: BELIMUMAB
     Indication: PRODUCT USED FOR UNKNOWN INDICATION
  3. ANTI-NAUSEA (NOS) [Concomitant]
  4. SODIUM CHLORIDE SOLUTION [Concomitant]
     Active Substance: SODIUM CHLORIDE

REACTIONS (4)
  - Headache [Unknown]
  - Nausea [Unknown]
  - Fatigue [Unknown]
  - Bone pain [Recovered/Resolved]
